FAERS Safety Report 5300961-2 (Version None)
Quarter: 2007Q2

REPORT INFORMATION
  Report Type: 
  Country: None (occurrence: None)
  Receive Date: 20070411
  Receipt Date: 20070328
  Transmission Date: 20071010
  Serious: Yes (Death, Hospitalization, Other)
  Sender: FDA-Public Use
  Company Number: 163-21880-07010130

PATIENT
  Age: 69 Year
  Sex: Female

DRUGS (8)
  1. REVLIMID [Suspect]
     Indication: MULTIPLE MYELOMA
     Dosage: 25 MG, DAILY X 21 DAYS, ORAL
     Route: 048
     Dates: start: 20060221, end: 20061207
  2. DECADRON [Suspect]
     Indication: DRUG USE FOR UNKNOWN INDICATION
     Dosage: 40 MG, X 4 DAYS, THEN OFF X 4 DAYS
  3. COUMADIN [Concomitant]
  4. CLONIDINE [Concomitant]
  5. FUROSEMIDE [Concomitant]
  6. AVELOX [Concomitant]
  7. HUMULIN 70/30 [Concomitant]
  8. GLIPIZIDE [Concomitant]

REACTIONS (7)
  - CARDIO-RESPIRATORY ARREST [None]
  - COLITIS [None]
  - COLONIC POLYP [None]
  - DUODENAL ULCER HAEMORRHAGE [None]
  - LARGE INTESTINAL HAEMORRHAGE [None]
  - OESOPHAGEAL ULCER HAEMORRHAGE [None]
  - SHOCK [None]
